FAERS Safety Report 21988726 (Version 1)
Quarter: 2023Q1

REPORT INFORMATION
  Report Type: Spontaneous
  Country: DE (occurrence: DE)
  Receive Date: 20230214
  Receipt Date: 20230214
  Transmission Date: 20230418
  Serious: Yes (Other)
  Sender: FDA-Public Use
  Company Number: DE-EMBRYOTOX-202104552

PATIENT
  Age: 1 Day
  Sex: Male
  Weight: 2.72 kg

DRUGS (8)
  1. METOPROLOL [Suspect]
     Active Substance: METOPROLOL
     Indication: Foetal exposure during pregnancy
     Dosage: MOTHER DOSE 47.5 MG/D, 2 SEPARATED DOSES START DATE 27 FEB 2021 AND STOP DATE
     Route: 064
  2. DIHYDRALAZINE SULFATE [Suspect]
     Active Substance: DIHYDRALAZINE SULFATE
     Indication: Foetal exposure during pregnancy
     Dosage: MOTHER DOSE (25 [MG/D ]/ SIDE EFFECTS: MIGRAINE, CHILLS, VOMITING)
     Route: 064
  3. HYDROCHLOROTHIAZIDE\RAMIPRIL [Concomitant]
     Active Substance: HYDROCHLOROTHIAZIDE\RAMIPRIL
     Indication: Foetal exposure during pregnancy
     Dosage: MOTHER DOSE: 5 MG/D / 12.5 [MG/D ]
     Route: 064
  4. RHOPHYLAC [Concomitant]
     Active Substance: HUMAN RHO(D) IMMUNE GLOBULIN
     Indication: Foetal exposure during pregnancy
     Dosage: UNK
     Route: 064
  5. TORSEMIDE [Concomitant]
     Active Substance: TORSEMIDE
     Indication: Foetal exposure during pregnancy
     Dosage: UNK
     Route: 064
  6. ASPIRIN [Concomitant]
     Active Substance: ASPIRIN
     Indication: Foetal exposure during pregnancy
     Dosage: MOTHER DOSE: 150 [MG/D ]
     Route: 064
  7. LEVOTHYROXINE SODIUM [Concomitant]
     Active Substance: LEVOTHYROXINE SODIUM
     Indication: Foetal exposure during pregnancy
     Dosage: MOTHER DOSE (125 [?G/D ], START DATE 27-FEB-2021 )
     Route: 064
  8. MISOPROSTOL [Concomitant]
     Active Substance: MISOPROSTOL
     Indication: Foetal exposure during pregnancy
     Dosage: MOTHER DOSE (START DATE 04-DEC-2021 STOP DATE 04 DEC 2021)
     Route: 064

REACTIONS (2)
  - Small for dates baby [Recovered/Resolved]
  - Foetal exposure during pregnancy [Unknown]

NARRATIVE: CASE EVENT DATE: 20211201
